FAERS Safety Report 4963187-8 (Version None)
Quarter: 2006Q1

REPORT INFORMATION
  Report Type: 
  Country: None (occurrence: None)
  Receive Date: 20060331
  Receipt Date: 20050315
  Transmission Date: 20060701
  Serious: Yes (Hospitalization, Congenital Anomaly)
  Sender: FDA-Public Use
  Company Number: STA-AE-05-005

PATIENT
  Age: 23 Month
  Sex: Male
  Weight: 14.5 kg

DRUGS (3)
  1. NAPROXEN [Suspect]
     Indication: MIGRAINE
     Dosage: 550 MG TWICE A WEEK
  2. BISOPROL [Suspect]
     Indication: MIGRAINE
     Dosage: 5 MG ONCE DAILY
  3. SUMITRIPAN [Suspect]
     Indication: MIGRAINE
     Dosage: 100 MG ONCE A WEEK

REACTIONS (10)
  - BREECH PRESENTATION [None]
  - CAESAREAN SECTION [None]
  - CLEFT LIP AND PALATE [None]
  - CONGENITAL NOSE MALFORMATION [None]
  - DRUG EXPOSURE DURING PREGNANCY [None]
  - FACIAL DYSMORPHISM [None]
  - HYPERTELORISM OF ORBIT [None]
  - MONOPARESIS [None]
  - PHALANGEAL AGENESIS [None]
  - PHALANGEAL HYPOPLASIA [None]
